FAERS Safety Report 23493201 (Version 2)
Quarter: 2024Q1

REPORT INFORMATION
  Report Type: Spontaneous
  Country: BE (occurrence: BE)
  Receive Date: 20240207
  Receipt Date: 20240308
  Transmission Date: 20240410
  Serious: Yes (Other)
  Sender: FDA-Public Use
  Company Number: BE-TAKEDA-2024TUS003651

PATIENT
  Sex: Male

DRUGS (3)
  1. INTUNIV [Suspect]
     Active Substance: GUANFACINE HYDROCHLORIDE
     Indication: Attention deficit hyperactivity disorder
     Dosage: UNK UNK, QD
     Route: 048
     Dates: start: 20220419, end: 202208
  2. LISDEXAMFETAMINE DIMESYLATE [Suspect]
     Active Substance: LISDEXAMFETAMINE DIMESYLATE
     Indication: Product used for unknown indication
     Dosage: UNK
     Route: 065
  3. METHYLPHENIDATE HYDROCHLORIDE [Suspect]
     Active Substance: METHYLPHENIDATE HYDROCHLORIDE
     Indication: Attention deficit hyperactivity disorder
     Dosage: UNK
     Route: 065

REACTIONS (9)
  - Intentional self-injury [Recovered/Resolved]
  - Thinking abnormal [Recovered/Resolved]
  - Anger [Recovered/Resolved]
  - Head banging [Recovered/Resolved]
  - Behaviour disorder [Recovered/Resolved]
  - Drug effect less than expected [Unknown]
  - Aggression [Recovered/Resolved]
  - Depressive symptom [Recovered/Resolved]
  - Decreased appetite [Unknown]
